FAERS Safety Report 16071332 (Version 1)
Quarter: 2019Q2

REPORT INFORMATION
  Report Type: Spontaneous
  Country: US (occurrence: US)
  Receive Date: 20190314
  Receipt Date: 20190314
  Transmission Date: 20190711
  Serious: Yes (Other)
  Sender: FDA-Public Use
  Company Number: None

PATIENT
  Age: 30 Year
  Sex: Female
  Weight: 58.5 kg

DRUGS (2)
  1. AZITHROMYCIN MONOHYDRATE. [Suspect]
     Active Substance: AZITHROMYCIN MONOHYDRATE
     Indication: UPPER-AIRWAY COUGH SYNDROME
     Dosage: ?          QUANTITY:6 TABLET(S);?
     Route: 048
     Dates: start: 20190107, end: 20190109
  2. AZITHROMYCIN MONOHYDRATE. [Suspect]
     Active Substance: AZITHROMYCIN MONOHYDRATE
     Indication: PHARYNGITIS STREPTOCOCCAL
     Dosage: ?          QUANTITY:6 TABLET(S);?
     Route: 048
     Dates: start: 20190107, end: 20190109

REACTIONS (18)
  - Feeling abnormal [None]
  - Feeling hot [None]
  - Musculoskeletal pain [None]
  - Dyspepsia [None]
  - Ear discomfort [None]
  - Chest pain [None]
  - Paraesthesia oral [None]
  - Tinnitus [None]
  - Panic reaction [None]
  - Epistaxis [None]
  - Insomnia [None]
  - Gastrooesophageal reflux disease [None]
  - Muscle twitching [None]
  - Headache [None]
  - Hypoaesthesia oral [None]
  - Crying [None]
  - Neck pain [None]
  - Ear pain [None]

NARRATIVE: CASE EVENT DATE: 20190308
